FAERS Safety Report 9218147 (Version 1)
Quarter: 2013Q2

REPORT INFORMATION
  Report Type: Other
  Country: MA (occurrence: MA)
  Receive Date: 20130408
  Receipt Date: 20130408
  Transmission Date: 20140414
  Serious: Yes (Death, Hospitalization)
  Sender: FDA-Public Use
  Company Number: MA-US-EMD SERONO, INC.-7203082

PATIENT
  Age: 40 Year
  Sex: Male

DRUGS (1)
  1. RECOMBINANT HUMAN GROWTH HORMONE (RHGH) [Suspect]
     Indication: MUSCLE BUILDING THERAPY

REACTIONS (3)
  - Ischaemic stroke [Fatal]
  - Drug abuse [Fatal]
  - Cerebral infarction [None]
